FAERS Safety Report 21552734 (Version 3)
Quarter: 2022Q4

REPORT INFORMATION
  Report Type: Report from Study
  Country: US (occurrence: US)
  Receive Date: 20221104
  Receipt Date: 20221123
  Transmission Date: 20230113
  Serious: Yes (Hospitalization)
  Sender: FDA-Public Use
  Company Number: US-VERTEX PHARMACEUTICALS-2022-016464

PATIENT
  Age: 64 Year
  Sex: Female

DRUGS (7)
  1. TRIKAFTA [Suspect]
     Active Substance: ELEXACAFTOR\IVACAFTOR\TEZACAFTOR
     Indication: Cystic fibrosis
     Dosage: BID
     Route: 048
     Dates: start: 20221024
  2. ALBUTEROL [Concomitant]
     Active Substance: ALBUTEROL
     Dosage: (2.5MG/3ML) 25X3ML
  3. CAYSTON [Concomitant]
     Active Substance: AZTREONAM
  4. SODIUM CHLORIDE [Concomitant]
     Active Substance: SODIUM CHLORIDE
     Route: 055
  5. TRELEGY ELLIPTA [Concomitant]
     Active Substance: FLUTICASONE FUROATE\UMECLIDINIUM BROMIDE\VILANTEROL TRIFENATATE
     Dosage: 100-62.5 MCG INH 30P
     Route: 055
  6. VITAMIN D NOS [Concomitant]
     Active Substance: VITAMIN D NOS
  7. PULMOZYME [Concomitant]
     Active Substance: DORNASE ALFA
     Dosage: 30 X 2.5 ML

REACTIONS (3)
  - Productive cough [Recovered/Resolved]
  - Abdominal pain upper [Not Recovered/Not Resolved]
  - Gastrooesophageal reflux disease [Unknown]

NARRATIVE: CASE EVENT DATE: 20221001
